FAERS Safety Report 5745109-5 (Version None)
Quarter: 2008Q2

REPORT INFORMATION
  Report Type: 
  Country: None (occurrence: None)
  Receive Date: 20080521
  Receipt Date: 20080512
  Transmission Date: 20081010
  Serious: Yes (Other)
  Sender: FDA-Public Use
  Company Number: PHHY2008JP07974

PATIENT
  Sex: Male

DRUGS (3)
  1. TAXOL [Concomitant]
  2. NOLVADEX [Concomitant]
  3. ZOMETA [Suspect]
     Indication: METASTASES TO BONE
     Route: 042

REACTIONS (3)
  - ORAL SURGERY [None]
  - OSTEONECROSIS [None]
  - TOOTHACHE [None]
